FAERS Safety Report 6172456-8 (Version None)
Quarter: 2009Q2

REPORT INFORMATION
  Report Type: 
  Country: None (occurrence: None)
  Receive Date: 20090429
  Receipt Date: 20090427
  Transmission Date: 20091009
  Serious: No
  Sender: FDA-Public Use
  Company Number: US-B.I. PHARMACEUTICALS,INC./RIDGEFIELD-2009-BP-05316BP

PATIENT
  Age: 60 Year
  Sex: Male

DRUGS (5)
  1. FLOMAX [Suspect]
     Indication: BENIGN PROSTATIC HYPERPLASIA
     Dosage: .4MG
     Route: 048
     Dates: start: 20090317
  2. LAMICTAL [Concomitant]
     Indication: BIPOLAR DISORDER
  3. WELLBUTRIN [Concomitant]
     Indication: BIPOLAR DISORDER
  4. PROZAC [Concomitant]
     Indication: BIPOLAR DISORDER
  5. AVODART [Concomitant]
     Indication: BENIGN PROSTATIC HYPERPLASIA

REACTIONS (1)
  - URINARY RETENTION [None]
